FAERS Safety Report 25393827 (Version 2)
Quarter: 2025Q3

REPORT INFORMATION
  Report Type: Spontaneous
  Country: US (occurrence: US)
  Receive Date: 20250604
  Receipt Date: 20250813
  Transmission Date: 20251020
  Serious: Yes (Disabling, Other)
  Sender: ROCHE
  Company Number: US-ROCHE-10000298877

PATIENT
  Age: 26 Year
  Sex: Female

DRUGS (2)
  1. OCRELIZUMAB [Suspect]
     Active Substance: OCRELIZUMAB
     Indication: Multiple sclerosis
     Route: 065
  2. TOCILIZUMAB [Concomitant]
     Active Substance: TOCILIZUMAB

REACTIONS (3)
  - Encephalitis herpes [Recovering/Resolving]
  - Respiratory tract infection bacterial [Unknown]
  - Septic shock [Unknown]
